FAERS Safety Report 5689937-3 (Version None)
Quarter: 2008Q1

REPORT INFORMATION
  Report Type: 
  Country: None (occurrence: None)
  Receive Date: 20080331
  Receipt Date: 20080331
  Transmission Date: 20080703
  Serious: Yes (Hospitalization)
  Sender: FDA-Public Use
  Company Number: None

PATIENT
  Sex: Male
  Weight: 17.3 kg

DRUGS (1)
  1. ACCUTANE [Suspect]
     Dosage: 990 MG
     Dates: end: 20080327

REACTIONS (2)
  - BONE PAIN [None]
  - HYPERCALCAEMIA [None]
